FAERS Safety Report 20894152 (Version 1)
Quarter: 2022Q2

REPORT INFORMATION
  Report Type: Spontaneous
  Country: US (occurrence: US)
  Receive Date: 20220531
  Receipt Date: 20220531
  Transmission Date: 20220721
  Serious: Yes (Other)
  Sender: FDA-Public Use
  Company Number: US-ELI_LILLY_AND_COMPANY-US202205008363

PATIENT
  Sex: Male

DRUGS (2)
  1. BEBTELOVIMAB [Suspect]
     Active Substance: BEBTELOVIMAB
     Indication: COVID-19
     Dosage: UNK UNK, UNKNOWN
     Route: 065
     Dates: start: 202205
  2. WARFARIN [Concomitant]
     Active Substance: WARFARIN
     Indication: Blood viscosity decreased

REACTIONS (7)
  - International normalised ratio increased [Unknown]
  - Headache [Unknown]
  - Asthenia [Unknown]
  - Blood viscosity decreased [Unknown]
  - Oxygen saturation decreased [Unknown]
  - Chills [Unknown]
  - Confusional state [Unknown]
